FAERS Safety Report 26121042 (Version 2)
Quarter: 2025Q4

REPORT INFORMATION
  Report Type: Report from Study
  Country: CA (occurrence: CA)
  Receive Date: 20251204
  Receipt Date: 20251221
  Transmission Date: 20260118
  Serious: Yes (Other)
  Sender: JOHNSON AND JOHNSON
  Company Number: CA-JNJFOC-20240428992

PATIENT
  Age: 26 Year
  Sex: Female
  Weight: 54 kg

DRUGS (14)
  1. REMICADE [Suspect]
     Active Substance: INFLIXIMAB
     Indication: Juvenile idiopathic arthritis
     Route: 041
     Dates: start: 20251028
  2. REMICADE [Suspect]
     Active Substance: INFLIXIMAB
     Indication: Ankylosing spondylitis
     Route: 041
     Dates: start: 20250610
  3. REMICADE [Suspect]
     Active Substance: INFLIXIMAB
     Route: 041
     Dates: start: 20240624
  4. REMICADE [Suspect]
     Active Substance: INFLIXIMAB
     Dosage: DOSE ALSO REPORTED AS 270
     Route: 041
     Dates: start: 20190624
  5. REMICADE [Suspect]
     Active Substance: INFLIXIMAB
     Route: 041
     Dates: start: 20190624
  6. REMICADE [Suspect]
     Active Substance: INFLIXIMAB
     Route: 041
     Dates: start: 20190624
  7. REMICADE [Suspect]
     Active Substance: INFLIXIMAB
     Route: 041
     Dates: start: 20190624
  8. REMICADE [Suspect]
     Active Substance: INFLIXIMAB
     Route: 041
     Dates: start: 20190624
  9. REMICADE [Suspect]
     Active Substance: INFLIXIMAB
     Route: 041
     Dates: start: 20190624
  10. REMICADE [Suspect]
     Active Substance: INFLIXIMAB
     Route: 041
     Dates: start: 20190624
  11. REMICADE [Suspect]
     Active Substance: INFLIXIMAB
     Route: 041
     Dates: start: 20190624
  12. REMICADE [Suspect]
     Active Substance: INFLIXIMAB
     Route: 041
  13. REMICADE [Suspect]
     Active Substance: INFLIXIMAB
     Route: 041
  14. REMICADE [Suspect]
     Active Substance: INFLIXIMAB
     Route: 041
     Dates: start: 20251028

REACTIONS (11)
  - Haematochezia [Unknown]
  - Ankylosing spondylitis [Not Recovered/Not Resolved]
  - Accident at work [Recovered/Resolved]
  - Fatigue [Recovered/Resolved]
  - Abdominal pain [Not Recovered/Not Resolved]
  - Headache [Recovered/Resolved]
  - Psoriasis [Not Recovered/Not Resolved]
  - Influenza [Recovering/Resolving]
  - Labyrinthitis [Recovering/Resolving]
  - Therapeutic product effect incomplete [Unknown]
  - Incorrect drug administration rate [Unknown]

NARRATIVE: CASE EVENT DATE: 20240514
